FAERS Safety Report 12154507 (Version 1)
Quarter: 2016Q1

REPORT INFORMATION
  Report Type: Spontaneous
  Country: US (occurrence: None)
  Receive Date: 20160304
  Receipt Date: 20160304
  Transmission Date: 20160526
  Serious: No
  Sender: FDA-Public Use
  Company Number: None

PATIENT
  Age: 67 Year
  Sex: Male
  Weight: 68.04 kg

DRUGS (3)
  1. PREDNISONE. [Concomitant]
     Active Substance: PREDNISONE
  2. PREDNISONE TABS 1, 2.5 MG CVS CAREMARK [Suspect]
     Active Substance: PREDNISONE
     Indication: ARTHROPATHY
     Dosage: VARIABLE 5-7 MG/DAY TWICE DAILY
  3. PREDNISONE TABS 1, 2.5 MG CVS CAREMARK [Suspect]
     Active Substance: PREDNISONE
     Indication: POLYMYALGIA RHEUMATICA
     Dosage: VARIABLE 5-7 MG/DAY TWICE DAILY

REACTIONS (1)
  - Product packaging confusion [None]

NARRATIVE: CASE EVENT DATE: 20160301
